FAERS Safety Report 13553052 (Version 2)
Quarter: 2018Q3

REPORT INFORMATION
  Report Type: Spontaneous
  Country: US (occurrence: US)
  Receive Date: 20170517
  Receipt Date: 20180928
  Transmission Date: 20181010
  Serious: No
  Sender: FDA-Public Use
  Company Number: US-PFIZER INC-2017215145

PATIENT
  Age: 62 Year
  Sex: Female

DRUGS (1)
  1. LYRICA [Suspect]
     Active Substance: PREGABALIN
     Indication: BACK PAIN
     Dosage: 75 MG, 3X/DAY (1 CAPSULE 3 TIMES A DAY) (TAKE 1 CAP BY MOUTH 3 TIMES DAILY)
     Route: 048

REACTIONS (1)
  - No adverse event [Unknown]
